FAERS Safety Report 8319529-9 (Version None)
Quarter: 2012Q2

REPORT INFORMATION
  Report Type: 
  Country: None (occurrence: None)
  Receive Date: 20120427
  Receipt Date: 20120418
  Transmission Date: 20120825
  Serious: Yes (Other)
  Sender: FDA-Public Use
  Company Number: US-ASTRAZENECA-2012SE25659

PATIENT
  Age: 83 Year
  Sex: Female

DRUGS (2)
  1. ATACAND [Suspect]
     Route: 048
  2. PLAVIX [Concomitant]

REACTIONS (3)
  - CARDIAC ANEURYSM [None]
  - GANGRENE [None]
  - HYPOAESTHESIA [None]
